FAERS Safety Report 10789103 (Version 1)
Quarter: 2015Q1

REPORT INFORMATION
  Report Type: Spontaneous
  Country: US (occurrence: None)
  Receive Date: 20150211
  Receipt Date: 20150211
  Transmission Date: 20150721
  Serious: Yes (Disabling)
  Sender: FDA-Public Use
  Company Number: None

PATIENT
  Age: 18 Year
  Sex: Female
  Weight: 58.97 kg

DRUGS (1)
  1. MEDROXYPROGESTERONE 10 MG [Suspect]
     Active Substance: MEDROXYPROGESTERONE
     Indication: MENSTRUAL DISORDER
     Dosage: 1 PILL PER DAY
     Route: 048
     Dates: start: 20020125, end: 20150125

REACTIONS (5)
  - No therapeutic response [None]
  - Educational problem [None]
  - Headache [None]
  - Migraine [None]
  - Muscle spasms [None]

NARRATIVE: CASE EVENT DATE: 20150115
